FAERS Safety Report 9107242 (Version 3)
Quarter: 2013Q2

REPORT INFORMATION
  Report Type: Report from Study
  Country: US (occurrence: US)
  Receive Date: 20130221
  Receipt Date: 20130408
  Transmission Date: 20140414
  Serious: Yes (Hospitalization)
  Sender: FDA-Public Use
  Company Number: US-JNJFOC-20121209956

PATIENT
  Age: 62 Year
  Sex: Male

DRUGS (4)
  1. REMICADE [Suspect]
     Indication: PRODUCT USED FOR UNKNOWN INDICATION
     Route: 042
     Dates: start: 20121023
  2. REMICADE [Suspect]
     Indication: PRODUCT USED FOR UNKNOWN INDICATION
     Route: 042
     Dates: start: 20121120
  3. REMICADE [Suspect]
     Indication: PRODUCT USED FOR UNKNOWN INDICATION
     Route: 042
     Dates: start: 20130123
  4. REMICADE [Suspect]
     Indication: PRODUCT USED FOR UNKNOWN INDICATION
     Route: 042
     Dates: start: 20121009

REACTIONS (23)
  - Thrombosis [Recovering/Resolving]
  - Fluid retention [Recovering/Resolving]
  - Dyspnoea [Recovering/Resolving]
  - Heart rate decreased [Recovering/Resolving]
  - Fatigue [Recovering/Resolving]
  - Dizziness [Recovering/Resolving]
  - Abdominal pain [Recovering/Resolving]
  - Paraesthesia [Recovering/Resolving]
  - Anxiety [Recovering/Resolving]
  - Blood pressure fluctuation [Recovering/Resolving]
  - Rash pruritic [Recovering/Resolving]
  - Vision blurred [Recovering/Resolving]
  - Dry mouth [Recovering/Resolving]
  - Local swelling [Recovering/Resolving]
  - Skin burning sensation [Recovering/Resolving]
  - Headache [Recovering/Resolving]
  - Oropharyngeal pain [Recovering/Resolving]
  - Nasal congestion [Recovering/Resolving]
  - Nausea [Recovering/Resolving]
  - Dysphagia [Recovering/Resolving]
  - Flushing [Recovering/Resolving]
  - Decreased appetite [Recovering/Resolving]
  - Pallor [Recovering/Resolving]
